FAERS Safety Report 7653461-9 (Version None)
Quarter: 2011Q3

REPORT INFORMATION
  Report Type: 
  Country: None (occurrence: None)
  Receive Date: 20110803
  Receipt Date: 20110725
  Transmission Date: 20111222
  Serious: Yes (Death)
  Sender: FDA-Public Use
  Company Number: KR-TEVA-294372ISR

PATIENT
  Age: 10 Year
  Sex: Female

DRUGS (3)
  1. CISPLATIN [Suspect]
     Indication: BONE SARCOMA
  2. METHOTREXATE [Suspect]
     Indication: BONE SARCOMA
  3. DOXORUBICIN HCL [Suspect]
     Indication: BONE SARCOMA

REACTIONS (4)
  - DEATH [None]
  - WERNICKE'S ENCEPHALOPATHY [None]
  - VOMITING [None]
  - NAUSEA [None]
